FAERS Safety Report 8223167-6 (Version None)
Quarter: 2012Q1

REPORT INFORMATION
  Report Type: 
  Country: None (occurrence: None)
  Receive Date: 20120321
  Receipt Date: 20120312
  Transmission Date: 20120608
  Serious: No
  Sender: FDA-Public Use
  Company Number: US-BIOGENIDEC-2012BI008914

PATIENT
  Sex: Female

DRUGS (2)
  1. TYSABRI [Concomitant]
     Indication: MULTIPLE SCLEROSIS
  2. AVONEX [Suspect]
     Indication: MULTIPLE SCLEROSIS
     Route: 030
     Dates: start: 20100514, end: 20111201

REACTIONS (5)
  - MUSCLE TIGHTNESS [None]
  - GAIT DISTURBANCE [None]
  - VERTIGO [None]
  - MIGRAINE [None]
  - TREMOR [None]
